FAERS Safety Report 23637817 (Version 1)
Quarter: 2024Q1

REPORT INFORMATION
  Report Type: Spontaneous
  Country: US (occurrence: US)
  Receive Date: 20240315
  Receipt Date: 20240315
  Transmission Date: 20240409
  Serious: No
  Sender: FDA-Public Use
  Company Number: US-SA-SAC20240312000411

PATIENT
  Sex: Female
  Weight: 88 kg

DRUGS (2)
  1. DUPIXENT [Suspect]
     Active Substance: DUPILUMAB
     Indication: Dermatitis atopic
     Dosage: 300 MG, QOW
     Route: 058
     Dates: start: 202306
  2. CEPHALEXIN [Concomitant]
     Active Substance: CEPHALEXIN
     Indication: Skin infection

REACTIONS (4)
  - Skin infection [Recovering/Resolving]
  - Furuncle [Recovering/Resolving]
  - Abscess [Recovering/Resolving]
  - Dermatitis atopic [Unknown]
